FAERS Safety Report 7016967-1 (Version None)
Quarter: 2010Q3

REPORT INFORMATION
  Report Type: 
  Country: None (occurrence: None)
  Receive Date: 20100927
  Receipt Date: 20100916
  Transmission Date: 20110219
  Serious: Yes (Other)
  Sender: FDA-Public Use
  Company Number: BR-PFIZER INC-2010117410

PATIENT
  Age: 67 Year
  Sex: Female
  Weight: 48 kg

DRUGS (2)
  1. CHAMPIX [Suspect]
     Indication: TOBACCO USER
     Dosage: UNK
     Route: 048
     Dates: start: 20100905
  2. CHAMPIX [Suspect]
     Dosage: 1 MG, 2X/DAY, EVERY 12 HOURS
     Route: 048

REACTIONS (2)
  - DISSOCIATIVE FUGUE [None]
  - EUPHORIC MOOD [None]
